FAERS Safety Report 6894783-9 (Version None)
Quarter: 2010Q3

REPORT INFORMATION
  Report Type: 
  Country: None (occurrence: None)
  Receive Date: 20100730
  Receipt Date: 20100730
  Transmission Date: 20110219
  Serious: Yes (Life-Threatening, Hospitalization)
  Sender: FDA-Public Use
  Company Number: None

PATIENT
  Age: 65 Year
  Sex: Male
  Weight: 72.5755 kg

DRUGS (6)
  1. SPIRIVA [Suspect]
     Indication: DYSPNOEA
     Dosage: 18 MCG 1/DAY
     Dates: start: 20070101, end: 20100101
  2. BUDESONIDE [Suspect]
     Indication: CHRONIC OBSTRUCTIVE PULMONARY DISEASE
     Dosage: .5 MG/2 ML
     Dates: start: 20090101, end: 20100101
  3. ACETAMINOPHEN AND HYDROCODONE BITARTRATE [Concomitant]
  4. GABAPENTIN [Concomitant]
  5. MORPHINE [Concomitant]
  6. OMEPRAZOLE [Concomitant]

REACTIONS (3)
  - PNEUMONIA [None]
  - RESPIRATORY DISTRESS [None]
  - UPPER RESPIRATORY TRACT INFECTION [None]
